FAERS Safety Report 7252499-3 (Version None)
Quarter: 2011Q1

REPORT INFORMATION
  Report Type: 
  Country: None (occurrence: None)
  Receive Date: 20110129
  Receipt Date: 20100112
  Transmission Date: 20110831
  Serious: No
  Sender: FDA-Public Use
  Company Number: US-ABBOTT-10P-163-0619715-00

PATIENT
  Sex: Female
  Weight: 71.732 kg

DRUGS (7)
  1. NOSE SPRAY [Concomitant]
     Indication: SINUS CONGESTION
  2. METHOTREXATE [Concomitant]
     Indication: RHEUMATOID ARTHRITIS
  3. SYNTHROID [Concomitant]
     Indication: HYPOTHYROIDISM
  4. HUMIRA [Suspect]
     Indication: RHEUMATOID ARTHRITIS
     Dates: start: 20091001
  5. ALLEGRA [Concomitant]
     Indication: SINUS CONGESTION
     Dates: start: 20080101
  6. SAVELLA [Concomitant]
     Indication: FIBROMYALGIA
     Dates: start: 20090101
  7. TOPAMAX [Concomitant]
     Indication: MIGRAINE
     Dosage: AS DIRECTED
     Dates: start: 20000101

REACTIONS (4)
  - SINUS CONGESTION [None]
  - SINUSITIS [None]
  - SKIN FISSURES [None]
  - TINEA PEDIS [None]
